FAERS Safety Report 6722537-2 (Version None)
Quarter: 2010Q2

REPORT INFORMATION
  Report Type: 
  Country: None (occurrence: None)
  Receive Date: 20100505
  Receipt Date: 20100301
  Transmission Date: 20101027
  Serious: Yes (Life-Threatening, Hospitalization, Other)
  Sender: FDA-Public Use
  Company Number: WAES 1003USA00099

PATIENT
  Age: 57 Year
  Sex: Male
  Weight: 146.5118 kg

DRUGS (5)
  1. ISENTRESS [Suspect]
     Indication: HIV TEST POSITIVE
     Dosage: 400 MG/BID/PO
     Route: 048
     Dates: start: 20091012, end: 20100209
  2. KLONOPIN [Concomitant]
  3. LEXIVA [Concomitant]
  4. VIREAD [Concomitant]
  5. GABAPENTIN [Concomitant]

REACTIONS (2)
  - RENAL FAILURE ACUTE [None]
  - RHABDOMYOLYSIS [None]
